FAERS Safety Report 10191335 (Version 1)
Quarter: 2014Q2

REPORT INFORMATION
  Report Type: Spontaneous
  Country: IT (occurrence: IT)
  Receive Date: 20140523
  Receipt Date: 20140523
  Transmission Date: 20141212
  Serious: Yes (Other)
  Sender: FDA-Public Use
  Company Number: IT-TEVA-482273ISR

PATIENT
  Age: 57 Year
  Sex: Male
  Weight: 95 kg

DRUGS (3)
  1. FLUOROURACILE TEVA [Suspect]
     Indication: RECTAL CANCER
     Dosage: 2400 MG/M2 DAILY;
     Route: 042
     Dates: start: 20140313, end: 20140314
  2. ERBITUX [Suspect]
     Indication: RECTAL CANCER
     Dosage: 250 MG/KG DAILY;
     Route: 042
     Dates: start: 20140313, end: 20140313
  3. IRINOTECAN FRESENIUS [Suspect]
     Indication: RECTAL CANCER
     Dosage: 180 MG/M2 DAILY;
     Route: 042
     Dates: start: 20140313, end: 20140313

REACTIONS (2)
  - Dehydration [Recovered/Resolved]
  - Diarrhoea [Recovered/Resolved]
